FAERS Safety Report 8720262 (Version 2)
Quarter: 2012Q4

REPORT INFORMATION
  Report Type: 
  Country: US (occurrence: US)
  Receive Date: 20120813
  Receipt Date: 20120919
  Transmission Date: 20130627
  Serious: Yes (Other)
  Sender: FDA-Public Use
  Company Number: US-PFIZER INC-2012195862

PATIENT
  Age: 53 Year
  Sex: Female

DRUGS (1)
  1. PRISTIQ [Suspect]
     Indication: MAJOR DEPRESSION
     Dosage: 50 mg, daily
     Route: 048
     Dates: start: 20110617

REACTIONS (3)
  - Clostridium difficile infection [Unknown]
  - Depression [Unknown]
  - Medication residue [Unknown]
